FAERS Safety Report 15164550 (Version 1)
Quarter: 2018Q3

REPORT INFORMATION
  Report Type: Spontaneous
  Country: FR (occurrence: FR)
  Receive Date: 20180719
  Receipt Date: 20180719
  Transmission Date: 20181010
  Serious: Yes (Other)
  Sender: FDA-Public Use
  Company Number: FR-MERCK KGAA-2052380

PATIENT
  Sex: Female

DRUGS (4)
  1. NOVOTHYROX [Suspect]
     Active Substance: LEVOTHYROXINE SODIUM
     Indication: AUTOIMMUNE THYROIDITIS
  2. LEVOTHYROX [Suspect]
     Active Substance: LEVOTHYROXINE
  3. LEVOTHYROX [Suspect]
     Active Substance: LEVOTHYROXINE
  4. LEVOTHYROX [Suspect]
     Active Substance: LEVOTHYROXINE

REACTIONS (7)
  - Diarrhoea [None]
  - Feeling hot [None]
  - Weight loss poor [Recovering/Resolving]
  - Hyperthyroidism [None]
  - Insomnia [None]
  - Tachycardia [None]
  - Nausea [None]
